FAERS Safety Report 24113905 (Version 2)
Quarter: 2024Q3

REPORT INFORMATION
  Report Type: Report from Study
  Country: US (occurrence: US)
  Receive Date: 20240720
  Receipt Date: 20240920
  Transmission Date: 20241016
  Serious: Yes (Other)
  Sender: NOVARTIS
  Company Number: US-002147023-NVSC2024US092628

PATIENT
  Sex: Female

DRUGS (1)
  1. KESIMPTA [Suspect]
     Active Substance: OFATUMUMAB
     Indication: Multiple sclerosis
     Dosage: UNK
     Route: 065

REACTIONS (6)
  - Multiple sclerosis [Unknown]
  - Fatigue [Unknown]
  - Needle issue [Unknown]
  - Injection site haemorrhage [Unknown]
  - Wrong technique in device usage process [Unknown]
  - Anhidrosis [Unknown]
